FAERS Safety Report 16575350 (Version 2)
Quarter: 2025Q3

REPORT INFORMATION
  Report Type: Report from Study
  Country: US (occurrence: US)
  Receive Date: 20190716
  Receipt Date: 20250708
  Transmission Date: 20251020
  Serious: Yes (Other)
  Sender: AUROBINDO
  Company Number: US-AUROBINDO-AUR-APL-2019-038832

PATIENT
  Age: 21 Year
  Sex: Female

DRUGS (4)
  1. DEXAMETHASONE [Suspect]
     Active Substance: DEXAMETHASONE
     Indication: Menstruation irregular
     Route: 065
  2. DEXAMETHASONE [Suspect]
     Active Substance: DEXAMETHASONE
     Indication: Infertility
  3. CLOMIPHENE [Suspect]
     Active Substance: CLOMIPHENE
     Indication: Menstruation irregular
     Route: 065
  4. CLOMIPHENE [Suspect]
     Active Substance: CLOMIPHENE
     Indication: Infertility

REACTIONS (1)
  - Weight increased [Unknown]
